FAERS Safety Report 11100403 (Version 1)
Quarter: 2015Q2

REPORT INFORMATION
  Report Type: Spontaneous
  Country: US (occurrence: US)
  Receive Date: 20150508
  Receipt Date: 20150508
  Transmission Date: 20150821
  Serious: No
  Sender: FDA-Public Use
  Company Number: US-BAYER-2015-182636

PATIENT
  Age: 54 Year
  Sex: Female

DRUGS (1)
  1. CLIMARA PRO [Suspect]
     Active Substance: ESTRADIOL\LEVONORGESTREL
     Indication: HORMONE REPLACEMENT THERAPY
     Dosage: 0.045MG/0.015MG
     Route: 062
     Dates: start: 2013, end: 201504

REACTIONS (4)
  - Application site rash [None]
  - Product adhesion issue [None]
  - Application site hypersensitivity [None]
  - Scar [None]

NARRATIVE: CASE EVENT DATE: 2015
